FAERS Safety Report 6346177-2 (Version None)
Quarter: 2009Q3

REPORT INFORMATION
  Report Type: 
  Country: None (occurrence: None)
  Receive Date: 20090821
  Receipt Date: 20090530
  Transmission Date: 20100115
  Serious: No
  Sender: FDA-Public Use
  Company Number: 8047082

PATIENT
  Age: 56 Year
  Sex: Male

DRUGS (2)
  1. CIMZIA [Suspect]
     Indication: CROHN'S DISEASE
     Dosage: 400 MG SC
     Route: 058
  2. STEROID [Concomitant]

REACTIONS (1)
  - ASCITES [None]
